FAERS Safety Report 8974372 (Version 1)
Quarter: 2012Q4

REPORT INFORMATION
  Report Type: Spontaneous
  Country: FR (occurrence: None)
  Receive Date: 20121214
  Receipt Date: 20121214
  Transmission Date: 20130627
  Serious: Yes (Hospitalization)
  Sender: FDA-Public Use
  Company Number: DSA_61366_2012

PATIENT
  Age: 87 Year
  Sex: Male

DRUGS (12)
  1. FLAGYL [Suspect]
     Indication: PRODUCT USED FOR UNKNOWN INDICATION
     Dosage: (500 mg,  frequency unspecified  Intravenous  (not otherwise specified))
(10/17/2012  to 10/23/2012)
     Route: 042
     Dates: start: 20121017, end: 20121023
  2. ROCEPHINE [Concomitant]
  3. EBIXA [Concomitant]
  4. DAFALGAN [Concomitant]
  5. TRAMADOL [Concomitant]
  6. TRANSIPEG [Concomitant]
  7. PREVISCAN [Concomitant]
  8. LASILIX [Concomitant]
  9. TIAPRIDAL [Concomitant]
  10. VITAMINS [Concomitant]
  11. DIFFU K [Concomitant]
  12. TRIATEC [Concomitant]

REACTIONS (1)
  - Pancreatitis acute [None]
